FAERS Safety Report 4577930-3 (Version None)
Quarter: 2005Q1

REPORT INFORMATION
  Report Type: 
  Country: None (occurrence: None)
  Receive Date: 20050209
  Receipt Date: 20050124
  Transmission Date: 20050727
  Serious: Yes (Hospitalization, Congenital Anomaly)
  Sender: FDA-Public Use
  Company Number: 6012751

PATIENT
  Age: 1 Day
  Sex: Male

DRUGS (2)
  1. LEVOTHYROXINE SODIUM [Suspect]
     Dosage: TRANSPLACENTAL
     Route: 064
     Dates: end: 20041218
  2. MEDIATOR (BENFLUOREX HYDROCHLORIDE) [Suspect]
     Dosage: TRANSPLACENTAL
     Route: 064
     Dates: end: 20040915

REACTIONS (5)
  - ATRIAL SEPTAL DEFECT [None]
  - CHROMOSOME ABNORMALITY [None]
  - DRUG EXPOSURE DURING PREGNANCY [None]
  - FOETAL MALFORMATION [None]
  - TRUNCUS ARTERIOSUS PERSISTENT [None]
